FAERS Safety Report 4948490-X (Version None)
Quarter: 2006Q1

REPORT INFORMATION
  Report Type: 
  Country: None (occurrence: None)
  Receive Date: 20060313
  Receipt Date: 20060302
  Transmission Date: 20060701
  Serious: Yes (Life-Threatening)
  Sender: FDA-Public Use
  Company Number: SP-2006-002848

PATIENT
  Age: 72 Year
  Sex: Male

DRUGS (1)
  1. VOTUM 20 [Suspect]
     Indication: ESSENTIAL HYPERTENSION
     Dosage: 20 MG QD PO
     Route: 048
     Dates: start: 20051011, end: 20051108

REACTIONS (2)
  - ATRIAL FIBRILLATION [None]
  - ELECTROCARDIOGRAM QT SHORTENED [None]
